FAERS Safety Report 5737483-0 (Version None)
Quarter: 2008Q2

REPORT INFORMATION
  Report Type: 
  Country: None (occurrence: None)
  Receive Date: 20080514
  Receipt Date: 20080512
  Transmission Date: 20081010
  Serious: Yes (Other)
  Sender: FDA-Public Use
  Company Number: GB-TEVA-167577ISR

PATIENT
  Age: 34 Year
  Sex: Male

DRUGS (2)
  1. CITALOPRAM HYDROBROMIDE [Suspect]
     Route: 048
  2. VARENICLINE TARTRATE [Interacting]
     Indication: SMOKING CESSATION THERAPY
     Route: 048
     Dates: end: 20080115

REACTIONS (4)
  - AGGRESSION [None]
  - DRUG INTERACTION [None]
  - HYPOMANIA [None]
  - MANIA [None]
